FAERS Safety Report 18735514 (Version 1)
Quarter: 2021Q1

REPORT INFORMATION
  Report Type: Spontaneous
  Country: US (occurrence: US)
  Receive Date: 20210113
  Receipt Date: 20210113
  Transmission Date: 20210419
  Serious: Yes (Hospitalization)
  Sender: FDA-Public Use
  Company Number: US-ROCHE-2748265

PATIENT
  Age: 80 Year
  Sex: Female

DRUGS (4)
  1. ACTEMRA [Suspect]
     Active Substance: TOCILIZUMAB
     Indication: GIANT CELL ARTERITIS
     Dosage: INJECT IN STOMACH. TAKES WITH METHYLPREDNISOLONE
     Route: 058
  2. ACTEMRA [Suspect]
     Active Substance: TOCILIZUMAB
  3. ACTEMRA [Suspect]
     Active Substance: TOCILIZUMAB
  4. METHYLPREDNISOLONE. [Concomitant]
     Active Substance: METHYLPREDNISOLONE
     Indication: GIANT CELL ARTERITIS
     Dosage: TAPERING DOSE WITH TOCILIZUMAB
     Route: 048

REACTIONS (5)
  - Chondritis [Recovering/Resolving]
  - Amnesia [Not Recovered/Not Resolved]
  - Toothache [Recovered/Resolved]
  - Injection site pain [Unknown]
  - Headache [Not Recovered/Not Resolved]

NARRATIVE: CASE EVENT DATE: 202012
